FAERS Safety Report 5576734-2 (Version None)
Quarter: 2007Q4

REPORT INFORMATION
  Report Type: 
  Country: None (occurrence: None)
  Receive Date: 20071228
  Receipt Date: 20071217
  Transmission Date: 20080405
  Serious: Yes (Hospitalization)
  Sender: FDA-Public Use
  Company Number: US-JNJFOC-20071204700

PATIENT
  Sex: Female
  Weight: 55.79 kg

DRUGS (3)
  1. DURAGESIC-100 [Suspect]
     Indication: PAIN
     Route: 062
  2. LISINOPRIL [Suspect]
     Indication: HYPERTENSION
     Route: 048
  3. VICODIN [Concomitant]
     Indication: PAIN
     Route: 048

REACTIONS (7)
  - ANAPHYLACTIC SHOCK [None]
  - ASTHENIA [None]
  - COMA [None]
  - PNEUMONIA [None]
  - RESPIRATORY FAILURE [None]
  - SWOLLEN TONGUE [None]
  - WRONG TECHNIQUE IN DRUG USAGE PROCESS [None]
